FAERS Safety Report 4904574-3 (Version None)
Quarter: 2006Q1

REPORT INFORMATION
  Report Type: 
  Country: None (occurrence: None)
  Receive Date: 20060208
  Receipt Date: 20060126
  Transmission Date: 20060701
  Serious: Yes (Other)
  Sender: FDA-Public Use
  Company Number: JP-ROCHE-434369

PATIENT
  Age: 2 Year
  Sex: Female
  Weight: 12 kg

DRUGS (1)
  1. TAMIFLU [Suspect]
     Dosage: TAMILFU DRY SYRUP 3% (OSELTAMIVIR).
     Route: 048
     Dates: start: 20060118, end: 20060119

REACTIONS (2)
  - HALLUCINATION [None]
  - RESTLESSNESS [None]
